FAERS Safety Report 6458595-2 (Version None)
Quarter: 2009Q4

REPORT INFORMATION
  Report Type: 
  Country: None (occurrence: None)
  Receive Date: 20091126
  Receipt Date: 20091116
  Transmission Date: 20100525
  Serious: Yes (Hospitalization, Other)
  Sender: FDA-Public Use
  Company Number: US-ELI_LILLY_AND_COMPANY-US200911004322

PATIENT
  Age: 69 Year
  Sex: Female

DRUGS (15)
  1. FORTEO [Suspect]
     Dosage: 20 D/F, UNK
     Dates: start: 20090611
  2. FORTEO [Suspect]
     Dosage: 20 D/F, UNK
  3. NEXIUM [Concomitant]
     Dosage: 40 MG, DAILY (1/D)
  4. CYMBALTA [Concomitant]
     Dosage: 60 MG, DAILY (1/D)
  5. FELODIPINE [Concomitant]
     Dosage: 10 MG, DAILY (1/D)
  6. NITROFURANTOIN [Concomitant]
     Dosage: 50 MG, UNK
  7. MACRODANTIN [Concomitant]
     Dosage: UNK, DAILY (1/D)
  8. BENICAR [Concomitant]
     Dosage: 4-/25 MG
  9. CARVEDILOL [Concomitant]
     Dosage: 12.5 MG, EACH MORNING
  10. CARVEDILOL [Concomitant]
     Dosage: 12.5 MG, EACH EVENING
  11. CLORAZEPATE DIPOTASSIUM [Concomitant]
     Indication: TREMOR
  12. SIMVASTATIN [Concomitant]
     Dosage: 20 MG, DAILY (1/D)
  13. VITAMIN D [Concomitant]
     Dosage: 1000 IU, UNK
  14. ASCORBIC ACID [Concomitant]
     Dosage: 500 MG, UNK
  15. MORPHINE [Concomitant]
     Dosage: 1 D/F, DAILY (1/D)
     Dates: start: 20091001

REACTIONS (10)
  - ABASIA [None]
  - ACCIDENTAL OVERDOSE [None]
  - ELECTROMYOGRAM ABNORMAL [None]
  - FALL [None]
  - FORMICATION [None]
  - HYPOAESTHESIA [None]
  - MEMORY IMPAIRMENT [None]
  - MENTAL DISORDER [None]
  - NEURALGIA [None]
  - NEUROPATHY PERIPHERAL [None]
